FAERS Safety Report 4766151-7 (Version None)
Quarter: 2005Q3

REPORT INFORMATION
  Report Type: 
  Country: None (occurrence: None)
  Receive Date: 20050909
  Receipt Date: 20050902
  Transmission Date: 20060218
  Serious: Yes (Life-Threatening)
  Sender: FDA-Public Use
  Company Number: LNL-100040-NL

PATIENT

DRUGS (6)
  1. PANCURONIUM BROMIDE [Suspect]
     Indication: MUSCLE RELAXANT THERAPY
     Dosage: 3 MG, INTRAVENOUS NOS
     Route: 042
     Dates: start: 19980825, end: 19980825
  2. LIGNOCAINE [Concomitant]
  3. PROPOFOL [Concomitant]
  4. FENTANYL [Concomitant]
  5. DROPERIDOL [Concomitant]
  6. MIDAZOLAM [Concomitant]

REACTIONS (5)
  - ANAPHYLACTIC SHOCK [None]
  - COUGH [None]
  - HYPOTENSION [None]
  - HYPOVENTILATION [None]
  - TACHYCARDIA [None]
